FAERS Safety Report 12581597 (Version 1)
Quarter: 2016Q3

REPORT INFORMATION
  Report Type: Spontaneous
  Country: US (occurrence: US)
  Receive Date: 20160722
  Receipt Date: 20160722
  Transmission Date: 20161109
  Serious: No
  Sender: FDA-Public Use
  Company Number: US-LUPIN PHARMACEUTICALS INC.-E2B_00004914

PATIENT
  Sex: Male
  Weight: 98.97 kg

DRUGS (5)
  1. QUINAPRIL 40MG TABLETS [Suspect]
     Active Substance: QUINAPRIL
     Indication: HYPERTENSION
     Route: 048
  2. BABY ASPIRIN [Concomitant]
     Active Substance: ASPIRIN
     Indication: PRODUCT USED FOR UNKNOWN INDICATION
     Route: 065
  3. LIPITOR [Concomitant]
     Active Substance: ATORVASTATIN CALCIUM
     Indication: PRODUCT USED FOR UNKNOWN INDICATION
     Route: 065
  4. WATER PILL [Concomitant]
     Active Substance: UNSPECIFIED INGREDIENT
     Indication: PRODUCT USED FOR UNKNOWN INDICATION
     Route: 065
  5. QUINAPRIL 40MG TABLETS [Suspect]
     Active Substance: QUINAPRIL
     Route: 048

REACTIONS (1)
  - Gastrooesophageal reflux disease [Not Recovered/Not Resolved]
